FAERS Safety Report 6178841-2 (Version None)
Quarter: 2009Q2

REPORT INFORMATION
  Report Type: 
  Country: None (occurrence: None)
  Receive Date: 20090504
  Receipt Date: 20090326
  Transmission Date: 20091009
  Serious: No
  Sender: FDA-Public Use
  Company Number: US-ALEXION-A200900250

PATIENT
  Sex: Female

DRUGS (16)
  1. SOLIRIS [Suspect]
     Indication: PAROXYSMAL NOCTURNAL HAEMOGLOBINURIA
     Dosage: 600 MG, QW
     Route: 042
     Dates: start: 20090323
  2. ISOSORBIDE MONONITRATE [Concomitant]
     Dosage: 30 MG, QD
  3. ALDACTONE [Concomitant]
     Dosage: 25 MG, QOD
  4. LABETALOL HCL [Concomitant]
     Dosage: 150 MG, BID
  5. AMLODIPINE [Concomitant]
     Dosage: 5 MG, QD
  6. FOLIC ACID [Concomitant]
     Dosage: 1 MG, QD
  7. LIPITOR [Concomitant]
     Dosage: 40 MG, QD
  8. FUROSEMIDE [Concomitant]
     Dosage: 40 MG, QD
  9. PENTOXIFYLLINE [Concomitant]
     Dosage: 400 MG, BID
  10. SYNTHROID [Concomitant]
     Dosage: 25 UG, QD
  11. NEXIUM [Concomitant]
     Dosage: 40 MG, BID
  12. K-DUR [Concomitant]
     Dosage: 20 MEQ, QD
  13. VITAMIN C                          /00008001/ [Concomitant]
     Dosage: 500 MG, QD
  14. GABAPENTIN [Concomitant]
     Dosage: 300 MG, TID
  15. GLIPIZIDE [Concomitant]
     Dosage: 5 G, QD
  16. STOOL SOFTENER [Concomitant]
     Dosage: 200 MG, QD

REACTIONS (2)
  - ASTHENIA [None]
  - HAEMOGLOBIN DECREASED [None]
